FAERS Safety Report 4984018-6 (Version None)
Quarter: 2006Q1

REPORT INFORMATION
  Report Type: 
  Country: None (occurrence: None)
  Receive Date: 20060301
  Receipt Date: 20051027
  Transmission Date: 20060701
  Serious: Yes (Hospitalization)
  Sender: FDA-Public Use
  Company Number: S05-USA-04247-01

PATIENT
  Age: 90 Year
  Sex: Male

DRUGS (15)
  1. NAMENDA [Suspect]
     Indication: DEMENTIA
     Dosage: 10 MG BID PO
     Route: 048
     Dates: start: 20050321, end: 20050601
  2. NAMENDA [Suspect]
     Indication: DEMENTIA
     Dosage: 5 MG QD PO
     Route: 048
     Dates: start: 20050228, end: 20050306
  3. NAMENDA [Suspect]
     Indication: DEMENTIA
     Dosage: 5 MG BID PO
     Route: 048
     Dates: start: 20050307, end: 20050313
  4. NAMENDA [Suspect]
     Indication: DEMENTIA
     Dosage: 15 MG QD PO
     Route: 048
     Dates: start: 20050314, end: 20050320
  5. EXELON [Concomitant]
  6. LESCOL [Concomitant]
  7. LASIX [Concomitant]
  8. FLOMAX [Concomitant]
  9. POTASSIUM [Concomitant]
  10. AVODART [Concomitant]
  11. ECOTRIN (ACETYLSALICYLIC ACID) [Concomitant]
  12. XALATAN [Concomitant]
  13. AZOPT [Concomitant]
  14. ALLOPURINOL [Concomitant]
  15. PROMETHAZINE [Concomitant]

REACTIONS (1)
  - RENAL FAILURE [None]
